FAERS Safety Report 8764003 (Version 1)
Quarter: 2012Q4

REPORT INFORMATION
  Report Type: 
  Country: US (occurrence: US)
  Receive Date: 20120831
  Receipt Date: 20120831
  Transmission Date: 20130627
  Serious: Yes (Other)
  Sender: FDA-Public Use
  Company Number: US-JNJFOC-20120809208

PATIENT
  Sex: Male

DRUGS (3)
  1. INVEGA [Suspect]
     Indication: PRODUCT USED FOR UNKNOWN INDICATION
     Route: 048
  2. INVEGA [Suspect]
     Indication: PRODUCT USED FOR UNKNOWN INDICATION
     Route: 048
  3. ASPIRIN [Concomitant]
     Indication: MYALGIA
     Route: 065

REACTIONS (23)
  - Muscle spasms [Unknown]
  - Delusion [Recovering/Resolving]
  - Neuroleptic malignant syndrome [Not Recovered/Not Resolved]
  - Depression [Not Recovered/Not Resolved]
  - Dysphemia [Recovered/Resolved]
  - Mania [Unknown]
  - Mental disorder [Recovering/Resolving]
  - Insomnia [Unknown]
  - Influenza [Unknown]
  - Sweating fever [Not Recovered/Not Resolved]
  - Asthenia [Unknown]
  - Pain in extremity [Not Recovered/Not Resolved]
  - Muscle rigidity [Not Recovered/Not Resolved]
  - Tremor [Unknown]
  - Phobia [Unknown]
  - Weight decreased [Unknown]
  - Eating disorder [Unknown]
  - Chest pain [Unknown]
  - Muscle twitching [Unknown]
  - Bedridden [Not Recovered/Not Resolved]
  - Musculoskeletal stiffness [Not Recovered/Not Resolved]
  - Blood pressure decreased [Unknown]
  - Autonomic nervous system imbalance [Not Recovered/Not Resolved]
